FAERS Safety Report 9849452 (Version 1)
Quarter: 2014Q1

REPORT INFORMATION
  Report Type: Spontaneous
  Country: TR (occurrence: None)
  Receive Date: 20140124
  Receipt Date: 20140124
  Transmission Date: 20141002
  Serious: Yes (Other)
  Sender: FDA-Public Use
  Company Number: 2014HINLIT0027

PATIENT
  Age: 25 Year
  Sex: Female

DRUGS (1)
  1. LEVETIRACTAM [Suspect]
     Indication: EPILEPSY

REACTIONS (3)
  - Pancreatitis acute [None]
  - Maternal exposure during pregnancy [None]
  - Anaemia [None]
